FAERS Safety Report 20004778 (Version 1)
Quarter: 2021Q4

REPORT INFORMATION
  Report Type: Spontaneous
  Country: US (occurrence: US)
  Receive Date: 20211027
  Receipt Date: 20211027
  Transmission Date: 20220303
  Serious: Yes (Other)
  Sender: FDA-Public Use
  Company Number: None

PATIENT
  Age: 70 Year
  Sex: Male
  Weight: 84.15 kg

DRUGS (5)
  1. REGEN-COV [Suspect]
     Active Substance: CASIRIVIMAB\IMDEVIMAB
     Indication: COVID-19
     Dosage: ?          OTHER FREQUENCY:ONCE;
     Route: 041
     Dates: start: 20211021, end: 20211021
  2. L. acidophilus-L.rhamnosus [Concomitant]
  3. GLUCOSAMINE [Concomitant]
     Active Substance: GLUCOSAMINE
  4. ALLOPURINOL [Concomitant]
     Active Substance: ALLOPURINOL
     Dates: start: 20150813
  5. OMEGA-3 FATTY ACIDS [Concomitant]
     Active Substance: OMEGA-3 FATTY ACIDS
     Dates: start: 20120619

REACTIONS (7)
  - Discomfort [None]
  - Dyspepsia [None]
  - Chest discomfort [None]
  - Headache [None]
  - Cough [None]
  - Hypertension [None]
  - Lower respiratory tract congestion [None]

NARRATIVE: CASE EVENT DATE: 20211022
